FAERS Safety Report 6894672-X (Version None)
Quarter: 2010Q3

REPORT INFORMATION
  Report Type: 
  Country: None (occurrence: None)
  Receive Date: 20100802
  Receipt Date: 20100728
  Transmission Date: 20110219
  Serious: Yes (Other)
  Sender: FDA-Public Use
  Company Number: US-BRISTOL-MYERS SQUIBB COMPANY-15215072

PATIENT
  Age: 57 Year
  Sex: Female

DRUGS (3)
  1. ABILIFY [Suspect]
     Indication: DEPRESSION
     Dates: start: 20091004
  2. NALTREXONE [Concomitant]
  3. THYROID TAB [Concomitant]

REACTIONS (2)
  - DIABETES MELLITUS [None]
  - RENAL IMPAIRMENT [None]
